FAERS Safety Report 10228661 (Version 1)
Quarter: 2014Q2

REPORT INFORMATION
  Report Type: Spontaneous
  Country: US (occurrence: US)
  Receive Date: 20140610
  Receipt Date: 20140610
  Transmission Date: 20141212
  Serious: Yes (Other)
  Sender: FDA-Public Use
  Company Number: CHPA2014US007806

PATIENT
  Sex: Female

DRUGS (2)
  1. EXCEDRIN EXTRA STRENGTH [Suspect]
     Indication: MIGRAINE
     Dosage: 14- 18 PILLS DAILY
     Route: 048
  2. EXCEDRIN EXTRA STRENGTH [Suspect]
     Indication: OFF LABEL USE

REACTIONS (5)
  - Stillbirth [Unknown]
  - Maternal exposure during pregnancy [Unknown]
  - Cytomegalovirus infection [Unknown]
  - Pain [Unknown]
  - Incorrect dose administered [Unknown]
